FAERS Safety Report 10051464 (Version 5)
Quarter: 2014Q2

REPORT INFORMATION
  Report Type: Spontaneous
  Country: HN (occurrence: HN)
  Receive Date: 20140401
  Receipt Date: 20140416
  Transmission Date: 20141212
  Serious: Yes (Death, Life-Threatening, Hospitalization, Other)
  Sender: FDA-Public Use
  Company Number: HN-PFIZER INC-2014084631

PATIENT
  Age: 44 Year
  Sex: Female
  Weight: 70 kg

DRUGS (2)
  1. CYTOSAR [Suspect]
     Indication: ACUTE MYELOID LEUKAEMIA
     Dosage: 2 G, 2X/DAY, EVERY 12 HOURS FOR 3 DAYS (ALTERNATE DAYS M, W, F)
     Route: 042
     Dates: start: 20140314
  2. DOXORUBICIN [Suspect]
     Indication: ACUTE MYELOID LEUKAEMIA
     Dosage: 100 MG, 1X/DAY FOR 2 DAYS (MONDAY, TUESDAY)
     Route: 042
     Dates: start: 20140314

REACTIONS (24)
  - Cardio-respiratory arrest [Fatal]
  - Hypotension [Unknown]
  - Tachycardia [Unknown]
  - Pyrexia [Unknown]
  - Tachypnoea [Unknown]
  - Abdominal pain [Unknown]
  - Disorientation [Unknown]
  - Urinary tract infection bacterial [Unknown]
  - Thrombocytopenia [Unknown]
  - Electrolyte imbalance [Unknown]
  - Renal failure acute [Unknown]
  - Deafness [Unknown]
  - Constipation [Unknown]
  - Agitation [Unknown]
  - Vomiting [Unknown]
  - Mouth haemorrhage [Unknown]
  - Arthralgia [Unknown]
  - Central nervous system haemorrhage [Unknown]
  - Haemorrhagic stroke [Unknown]
  - Hyperglycaemia [Unknown]
  - Nervous system disorder [Unknown]
  - Haemodynamic instability [Unknown]
  - Headache [Unknown]
  - Septic shock [Unknown]
